FAERS Safety Report 4817237-X (Version None)
Quarter: 2005Q4

REPORT INFORMATION
  Report Type: 
  Country: None (occurrence: None)
  Receive Date: 20051018
  Receipt Date: 20050314
  Transmission Date: 20060501
  Serious: Yes (Other)
  Sender: FDA-Public Use
  Company Number: PHEH2005US00616

PATIENT
  Sex: Male

DRUGS (4)
  1. ZOMETA [Suspect]
     Indication: PROSTATE CANCER METASTATIC
     Dosage: INTRAVENOUS
     Route: 042
     Dates: start: 20030701
  2. AREDIA [Suspect]
     Indication: PROSTATE CANCER METASTATIC
     Dates: start: 20030701
  3. FORADIL [Concomitant]
  4. FLOVENT [Concomitant]

REACTIONS (5)
  - BONE DISORDER [None]
  - BONE LESION EXCISION [None]
  - MOUTH ULCERATION [None]
  - OSTEONECROSIS [None]
  - STOMATITIS [None]
